FAERS Safety Report 23242253 (Version 1)
Quarter: 2023Q4

REPORT INFORMATION
  Report Type: Report from Study
  Country: CA (occurrence: CA)
  Receive Date: 20231129
  Receipt Date: 20231129
  Transmission Date: 20240109
  Serious: Yes (Other)
  Sender: FDA-Public Use
  Company Number: CA-MYLANLABS-2022M1077796

PATIENT
  Age: 58 Year
  Sex: Female

DRUGS (1)
  1. HULIO [Suspect]
     Active Substance: ADALIMUMAB-FKJP
     Indication: Psoriasis
     Dosage: 80 MILLIGRAM, BIWEEKLY
     Route: 058
     Dates: start: 20220630

REACTIONS (4)
  - Colitis ulcerative [Unknown]
  - Headache [Unknown]
  - Psoriasis [Unknown]
  - Off label use [Unknown]
